FAERS Safety Report 15930866 (Version 1)
Quarter: 2019Q1

REPORT INFORMATION
  Report Type: Other
  Country: FR (occurrence: FR)
  Receive Date: 20190207
  Receipt Date: 20190207
  Transmission Date: 20190417
  Serious: Yes (Other)
  Sender: FDA-Public Use
  Company Number: FR-DENTSPLY-2019SCDP000074

PATIENT
  Age: 50 Year
  Sex: Male
  Weight: 78 kg

DRUGS (6)
  1. VISIPAQUE [Suspect]
     Active Substance: IODIXANOL
     Indication: ANGIOCARDIOGRAM
     Dosage: 150 ML, UNK
     Route: 013
     Dates: start: 20180106, end: 20180106
  2. RISORDAN                           /00110502/ [Suspect]
     Active Substance: .ALPHA.-TOCOPHEROL ACETATE
     Indication: ANGIOCARDIOGRAM
     Dosage: 2.5 MG, DRIP
     Route: 042
     Dates: start: 20180106, end: 20180106
  3. XYLOCAINE WITH ADRENALINE (EPINEPHRINE) [Suspect]
     Active Substance: EPINEPHRINE BITARTRATE\LIDOCAINE HYDROCHLORIDE
     Indication: ANGIOCARDIOGRAM
     Dosage: 1 ML, UNK
     Route: 058
     Dates: start: 20180106, end: 20180106
  4. BRILIQUE [Concomitant]
     Active Substance: TICAGRELOR
     Indication: PRODUCT USED FOR UNKNOWN INDICATION
     Dosage: UNK
  5. HEPARINE                           /00027701/ [Suspect]
     Active Substance: HEPARIN SODIUM
     Indication: ANGIOCARDIOGRAM
     Dosage: 5000 IU, DRIP
     Route: 042
     Dates: start: 20180106, end: 20180106
  6. ASPIRINE [Concomitant]
     Active Substance: ASPIRIN
     Indication: PRODUCT USED FOR UNKNOWN INDICATION
     Dosage: UNK

REACTIONS (1)
  - Rash [Recovered/Resolved]

NARRATIVE: CASE EVENT DATE: 20180106
